FAERS Safety Report 19648981 (Version 1)
Quarter: 2021Q3

REPORT INFORMATION
  Report Type: Report from Study
  Country: CN (occurrence: CN)
  Receive Date: 20210802
  Receipt Date: 20210802
  Transmission Date: 20211014
  Serious: Yes (Hospitalization)
  Sender: FDA-Public Use
  Company Number: CN-ELI_LILLY_AND_COMPANY-CN202106009638

PATIENT
  Age: 68 Year
  Sex: Female
  Weight: 66 kg

DRUGS (4)
  1. VERZENIOS [Suspect]
     Active Substance: ABEMACICLIB
     Dosage: 100 UNK
     Route: 048
     Dates: end: 20210715
  2. VERZENIOS [Suspect]
     Active Substance: ABEMACICLIB
     Dosage: 100 UNK
     Route: 048
  3. ANASTROZOLE. [Concomitant]
     Active Substance: ANASTROZOLE
     Indication: PRODUCT USED FOR UNKNOWN INDICATION
  4. VERZENIOS [Suspect]
     Active Substance: ABEMACICLIB
     Indication: BREAST CANCER
     Dosage: 150 MG, BID
     Route: 048
     Dates: start: 20210312

REACTIONS (7)
  - Inflammation [Recovering/Resolving]
  - Diarrhoea [Unknown]
  - Fatigue [Unknown]
  - Fungal test positive [Recovering/Resolving]
  - Weight decreased [Unknown]
  - Pyrexia [Recovering/Resolving]
  - Asthenia [Unknown]

NARRATIVE: CASE EVENT DATE: 20210715
